FAERS Safety Report 7687843-6 (Version None)
Quarter: 2011Q3

REPORT INFORMATION
  Report Type: 
  Country: None (occurrence: None)
  Receive Date: 20110817
  Receipt Date: 20110809
  Transmission Date: 20111222
  Serious: Yes (Hospitalization, Other)
  Sender: FDA-Public Use
  Company Number: US-ASTELLAS-2011US004853

PATIENT

DRUGS (7)
  1. PROZAC [Concomitant]
     Indication: ANXIETY
     Dosage: 20 MG, UID/QD
     Route: 048
     Dates: start: 20000101
  2. PREDNISONE [Concomitant]
     Indication: RENAL DISORDER
     Dosage: 5 MG, UID/QD
     Route: 048
     Dates: start: 20000101
  3. ACIPHEX [Concomitant]
     Indication: GASTROOESOPHAGEAL REFLUX DISEASE
     Dosage: 20 MG, UID/QD
     Route: 048
     Dates: start: 20081008
  4. ASPIRIN [Concomitant]
     Indication: ANTICOAGULANT THERAPY
     Dosage: 81 MG, BID
     Route: 048
     Dates: start: 20090513
  5. PROGRAF [Suspect]
     Indication: RENAL TRANSPLANT
     Dosage: 3 MG, BID
     Route: 048
     Dates: start: 20080418
  6. FUROSEMIDE [Concomitant]
     Indication: DIURETIC THERAPY
     Dosage: 10 MG, BID
     Route: 048
     Dates: start: 20091001
  7. ACIDOPHILUS [Concomitant]
     Indication: GASTROOESOPHAGEAL REFLUX DISEASE
     Dosage: UNK
     Route: 048
     Dates: start: 20081008

REACTIONS (4)
  - HEART VALVE REPLACEMENT [None]
  - OESOPHAGEAL RUPTURE [None]
  - HERNIA REPAIR [None]
  - HERNIA HIATUS REPAIR [None]
